FAERS Safety Report 17916501 (Version 1)
Quarter: 2020Q2

REPORT INFORMATION
  Report Type: Spontaneous
  Country: IN (occurrence: IN)
  Receive Date: 20200619
  Receipt Date: 20200619
  Transmission Date: 20200714
  Serious: Yes (Other)
  Sender: FDA-Public Use
  Company Number: IN-STRIDES ARCOLAB LIMITED-2020SP007282

PATIENT
  Age: 70 Year
  Sex: Male

DRUGS (1)
  1. DICLOFENAC [Suspect]
     Active Substance: DICLOFENAC
     Indication: ILL-DEFINED DISORDER
     Dosage: UNK (TABLET)
     Route: 048

REACTIONS (8)
  - Blindness [Unknown]
  - Corneal exfoliation [Unknown]
  - Panophthalmitis [Unknown]
  - Toxic epidermal necrolysis [Unknown]
  - Hypopyon [Unknown]
  - Eyelid oedema [Unknown]
  - Eye movement disorder [Unknown]
  - Exophthalmos [Unknown]
